FAERS Safety Report 6136694-2 (Version None)
Quarter: 2009Q1

REPORT INFORMATION
  Report Type: 
  Country: None (occurrence: None)
  Receive Date: 20090330
  Receipt Date: 20090318
  Transmission Date: 20090719
  Serious: Yes (Hospitalization)
  Sender: FDA-Public Use
  Company Number: PHHY2008MX03833

PATIENT
  Age: 41 Year
  Sex: Female

DRUGS (2)
  1. ZELMAC [Suspect]
     Dosage: 2 TABLETS PER DAY
     Route: 048
     Dates: start: 20080101, end: 20090101
  2. ZELMAC [Suspect]
     Dosage: 4 TABLETS PER DAY
     Route: 048

REACTIONS (2)
  - PYELONEPHRITIS [None]
  - SURGERY [None]
